FAERS Safety Report 15705316 (Version 2)
Quarter: 2019Q1

REPORT INFORMATION
  Report Type: Report from Study
  Country: NL (occurrence: NL)
  Receive Date: 20181210
  Receipt Date: 20190117
  Transmission Date: 20190417
  Serious: Yes (Hospitalization)
  Sender: FDA-Public Use
  Company Number: NL-ELI_LILLY_AND_COMPANY-NL201811004825

PATIENT
  Age: 68 Year
  Sex: Female
  Weight: 61 kg

DRUGS (5)
  1. CETUXIMAB. [Suspect]
     Active Substance: CETUXIMAB
     Indication: COLON CANCER
     Dosage: 400 MG/M2, SINGLE
     Route: 042
     Dates: start: 20181019, end: 20181019
  2. CETUXIMAB. [Suspect]
     Active Substance: CETUXIMAB
     Dosage: 200 MG/M2, WEEKLY (1/W)
     Route: 042
     Dates: start: 20181026, end: 20181102
  3. CETUXIMAB. [Suspect]
     Active Substance: CETUXIMAB
     Dosage: 400 MG/M2, UNKNOWN
     Route: 042
     Dates: start: 20181116
  4. ENCORAFENIB [Concomitant]
     Active Substance: ENCORAFENIB
     Indication: COLON CANCER
     Dosage: 300 MG, DAILY
     Route: 048
     Dates: start: 20181019, end: 20181101
  5. MEK 162 [Concomitant]
     Active Substance: BINIMETINIB
     Indication: COLON CANCER
     Dosage: 45 MG, BID
     Route: 048
     Dates: start: 20181019, end: 20181101

REACTIONS (4)
  - Nausea [Recovered/Resolved]
  - Prerenal failure [Recovered/Resolved]
  - Hypokalaemia [Recovered/Resolved]
  - Diarrhoea [Recovered/Resolved]

NARRATIVE: CASE EVENT DATE: 20181102
